FAERS Safety Report 24602309 (Version 8)
Quarter: 2025Q3

REPORT INFORMATION
  Report Type: Spontaneous
  Country: US (occurrence: US)
  Receive Date: 20241111
  Receipt Date: 20250828
  Transmission Date: 20251020
  Serious: Yes (Other)
  Sender: SUNOVION
  Company Number: US-SMPA-2024SPA004560

PATIENT
  Age: 79 Year
  Sex: Male

DRUGS (12)
  1. ORGOVYX [Suspect]
     Active Substance: RELUGOLIX
     Indication: Prostate cancer
     Dosage: 360 MG, SINGLE
     Route: 048
     Dates: start: 20241028, end: 20241028
  2. ORGOVYX [Suspect]
     Active Substance: RELUGOLIX
     Dosage: 120 MG, QD
     Route: 048
     Dates: start: 20241029
  3. VITAMINS [Concomitant]
     Active Substance: VITAMINS
  4. GLIPIZIDE [Concomitant]
     Active Substance: GLIPIZIDE
  5. OMEGA 3 [Concomitant]
     Active Substance: CAPSAICIN
  6. RAMIPRIL [Concomitant]
     Active Substance: RAMIPRIL
  7. ROSUVASTATIN [Concomitant]
     Active Substance: ROSUVASTATIN
  8. TADALAFIL [Concomitant]
     Active Substance: TADALAFIL
  9. VITAMIN D3 [Concomitant]
     Active Substance: CHOLECALCIFEROL
  10. Prostate support [Concomitant]
  11. Healthy heart plus [Concomitant]
  12. Soursop graviola gummies [Concomitant]

REACTIONS (26)
  - Diabetes mellitus [Unknown]
  - Nervousness [Unknown]
  - Rhinorrhoea [Unknown]
  - Dysphemia [Not Recovered/Not Resolved]
  - Tooth disorder [Unknown]
  - Peripheral swelling [Unknown]
  - Impaired driving ability [Unknown]
  - Tremor [Unknown]
  - Brain fog [Unknown]
  - Sluggishness [Unknown]
  - Muscular weakness [Unknown]
  - Mobility decreased [Unknown]
  - Hunger [Unknown]
  - Rib fracture [Unknown]
  - Dizziness [Unknown]
  - Back pain [Unknown]
  - Weight increased [Unknown]
  - Fatigue [Recovered/Resolved]
  - Myalgia [Unknown]
  - Arthralgia [Unknown]
  - Constipation [Unknown]
  - Hot flush [Unknown]
  - Fatigue [Unknown]
  - Product dose omission in error [Recovered/Resolved]
  - Wrong technique in product usage process [Unknown]
  - Product use complaint [Unknown]

NARRATIVE: CASE EVENT DATE: 20241025
